FAERS Safety Report 8215893-X (Version None)
Quarter: 2012Q1

REPORT INFORMATION
  Report Type: 
  Country: None (occurrence: None)
  Receive Date: 20120316
  Receipt Date: 20120307
  Transmission Date: 20120608
  Serious: Yes (Hospitalization)
  Sender: FDA-Public Use
  Company Number: US-B.I. PHARMACEUTICALS,INC./RIDGEFIELD-2012-BP-04442BP

PATIENT
  Age: 43 Year
  Sex: Female

DRUGS (4)
  1. MEDICATION NOT FURTHER SPECIFIED [Concomitant]
  2. EFFEXOR [Suspect]
     Indication: PAIN
     Dosage: 300 MG
     Route: 048
     Dates: start: 19940101
  3. UNSPECIFIED ANTI-INFLAMMATORY MEDICATIONS [Concomitant]
  4. MIRAPEX [Suspect]
     Indication: RESTLESS LEGS SYNDROME
     Dosage: 1.5 MG
     Route: 048
     Dates: start: 20010101

REACTIONS (11)
  - GASTRIC ULCER [None]
  - COGNITIVE DISORDER [None]
  - INFECTION [None]
  - RIB FRACTURE [None]
  - EROSIVE OESOPHAGITIS [None]
  - MALABSORPTION [None]
  - OESOPHAGEAL ULCER [None]
  - ATTENTION DEFICIT/HYPERACTIVITY DISORDER [None]
  - APHTHOUS STOMATITIS [None]
  - OESOPHAGEAL ACHALASIA [None]
  - EOSINOPHILIA [None]
